FAERS Safety Report 4870724-0 (Version None)
Quarter: 2006Q1

REPORT INFORMATION
  Report Type: 
  Country: None (occurrence: None)
  Receive Date: 20060103
  Receipt Date: 20051222
  Transmission Date: 20060701
  Serious: Yes (Hospitalization)
  Sender: FDA-Public Use
  Company Number: FR-AVENTIS-200514298FR

PATIENT
  Age: 65 Year
  Sex: Female

DRUGS (14)
  1. FLAGYL [Suspect]
     Indication: GASTROENTERITIS
     Route: 048
     Dates: start: 20051031, end: 20051105
  2. EFFERALGAN [Suspect]
     Indication: GASTROENTERITIS
     Route: 048
     Dates: start: 20051031, end: 20051105
  3. SMECTA [Suspect]
     Indication: GASTROENTERITIS
     Route: 048
     Dates: start: 20051117, end: 20051122
  4. ARESTAL [Suspect]
     Indication: GASTROENTERITIS
     Route: 048
     Dates: start: 20051117
  5. CIBLOR [Suspect]
     Indication: GASTROENTERITIS
     Route: 048
     Dates: start: 20051031, end: 20051105
  6. MOTILYO [Suspect]
     Indication: GASTROENTERITIS
     Route: 048
     Dates: start: 20051117
  7. INFLUVAC [Concomitant]
     Indication: INFLUENZA
     Route: 030
     Dates: start: 20051012, end: 20051012
  8. METEOSPASMYL [Concomitant]
     Dates: start: 20051012
  9. TRANSIPEG [Concomitant]
     Dates: start: 20051012
  10. PANFUREX [Concomitant]
     Dates: start: 20051012
  11. TETRAZEPAM [Concomitant]
     Indication: CERVICAL ROOT PAIN
     Dates: start: 20051022, end: 20051112
  12. SYMPAVAGOL [Concomitant]
     Indication: CERVICAL ROOT PAIN
     Dates: start: 20051022
  13. SPASFON [Concomitant]
     Indication: GASTROENTERITIS
     Dates: start: 20051031
  14. BEROCCA [Concomitant]
     Dates: start: 20051122

REACTIONS (1)
  - PANCYTOPENIA [None]
